FAERS Safety Report 7458219-1 (Version None)
Quarter: 2011Q2

REPORT INFORMATION
  Report Type: 
  Country: None (occurrence: None)
  Receive Date: 20110504
  Receipt Date: 20110428
  Transmission Date: 20111010
  Serious: Yes (Hospitalization)
  Sender: FDA-Public Use
  Company Number: JP-PFIZER INC-2011081743

PATIENT
  Age: 72 Year
  Sex: Male
  Weight: 67 kg

DRUGS (10)
  1. KETOPROFEN [Concomitant]
     Indication: PAIN
     Dosage: 30 MG, 1X/DAY
     Dates: start: 20090721
  2. DEPAKENE [Concomitant]
     Indication: PAIN
     Dosage: 600 MG, 2X/DAY
     Route: 048
     Dates: start: 19970404
  3. VALSARTAN [Concomitant]
     Indication: HYPERTENSION
     Dosage: 160 MG, 1X/DAY
     Route: 048
     Dates: start: 20100324
  4. SELBEX [Concomitant]
     Indication: GASTRITIS PROPHYLAXIS
     Dosage: 0.5 G, 2X/DAY
     Route: 048
     Dates: start: 20090721
  5. PREGABALIN [Suspect]
     Indication: PAIN
     Dosage: 300 MG, 2X/DAY
     Route: 048
     Dates: start: 20110222, end: 20110413
  6. GASTER [Concomitant]
     Indication: GASTRITIS PROPHYLAXIS
     Dosage: 10 MG, 2X/DAY
     Route: 048
  7. PURSENNID [Concomitant]
     Indication: CONSTIPATION
     Dosage: 24 MG, 1X/DAY
     Route: 048
     Dates: start: 20101012
  8. CONIEL [Concomitant]
     Indication: HYPERTENSION
     Dosage: 8 MG, 1X/DAY
     Route: 048
     Dates: start: 20100126
  9. MICARDIS [Concomitant]
     Indication: HYPERTENSION
     Dosage: 40 MG, 1X/DAY
     Route: 048
     Dates: start: 20100126
  10. BUP-4 [Concomitant]
     Indication: POLLAKIURIA
     Dosage: 10 MG, 1X/DAY
     Route: 048
     Dates: start: 20091201

REACTIONS (1)
  - CEREBRAL INFARCTION [None]
